FAERS Safety Report 14616626 (Version 1)
Quarter: 2018Q1

REPORT INFORMATION
  Report Type: Report from Study
  Country: None (occurrence: US)
  Receive Date: 20180309
  Receipt Date: 20180309
  Transmission Date: 20180509
  Serious: Yes (Other)
  Sender: FDA-Public Use
  Company Number: US-ABBVIE-17K-163-2118207-00

PATIENT
  Sex: Male

DRUGS (2)
  1. HUMIRA [Suspect]
     Active Substance: ADALIMUMAB
     Indication: RHEUMATOID ARTHRITIS
     Route: 058
     Dates: end: 201707
  2. HUMIRA [Suspect]
     Active Substance: ADALIMUMAB
     Indication: PSORIATIC ARTHROPATHY

REACTIONS (9)
  - Tendonitis [Recovering/Resolving]
  - Drug effect incomplete [Unknown]
  - Sinusitis [Recovered/Resolved]
  - Osteoarthritis [Not Recovered/Not Resolved]
  - Mobility decreased [Recovered/Resolved]
  - Abdominal hernia [Recovered/Resolved]
  - Arthropathy [Unknown]
  - Bronchitis [Recovered/Resolved]
  - Bacterial infection [Recovered/Resolved]

NARRATIVE: CASE EVENT DATE: 2017
